FAERS Safety Report 20351566 (Version 1)
Quarter: 2022Q1

REPORT INFORMATION
  Report Type: Spontaneous
  Country: US (occurrence: US)
  Receive Date: 20220119
  Receipt Date: 20220119
  Transmission Date: 20220423
  Serious: No
  Sender: FDA-Public Use
  Company Number: US-PFIZER INC-202101824674

PATIENT
  Age: 75 Year
  Sex: Male
  Weight: 113.4 kg

DRUGS (1)
  1. ZITHROMAX [Suspect]
     Active Substance: AZITHROMYCIN DIHYDRATE
     Indication: Pneumonia
     Dosage: UNK (TWO 5-DAY Z-PAKS)
     Dates: start: 20211120, end: 20211216

REACTIONS (6)
  - Drug ineffective [Unknown]
  - Muscle spasms [Unknown]
  - Muscle disorder [Unknown]
  - Limb discomfort [Unknown]
  - Hypoaesthesia [Unknown]
  - Hypoacusis [Unknown]
